FAERS Safety Report 16364087 (Version 1)
Quarter: 2019Q2

REPORT INFORMATION
  Report Type: Spontaneous
  Country: CH (occurrence: CH)
  Receive Date: 20190528
  Receipt Date: 20190528
  Transmission Date: 20190711
  Serious: Yes (Congenital Anomaly, Other)
  Sender: FDA-Public Use
  Company Number: CH-PFIZER INC-2019218235

PATIENT
  Sex: Male
  Weight: 3.22 kg

DRUGS (5)
  1. ASPIRIN CARDIO [Suspect]
     Active Substance: ASPIRIN
     Dosage: 100 MG, DAILY / USUAL TREATMENT
     Route: 064
  2. ROSUVASTATIN. [Suspect]
     Active Substance: ROSUVASTATIN
     Dosage: 20 MG, UNK
     Route: 064
     Dates: end: 20180702
  3. XANAX [Suspect]
     Active Substance: ALPRAZOLAM
     Dosage: 0.25 MG, AS NEEDED / AS NECESSARY
     Route: 064
     Dates: end: 20180702
  4. PRALUENT [Suspect]
     Active Substance: ALIROCUMAB
     Indication: TYPE IIA HYPERLIPIDAEMIA
     Dosage: 150 MG, EVERY 2 WEEKS
     Route: 064
     Dates: end: 20180604
  5. EZETIMIBE. [Suspect]
     Active Substance: EZETIMIBE
     Dosage: 10 MG, 0-0-1
     Route: 064
     Dates: end: 20180702

REACTIONS (3)
  - Congenital central nervous system anomaly [Not Recovered/Not Resolved]
  - Maternal exposure during pregnancy [Not Recovered/Not Resolved]
  - Bradycardia foetal [Unknown]

NARRATIVE: CASE EVENT DATE: 201806
